FAERS Safety Report 5632217-2 (Version None)
Quarter: 2008Q1

REPORT INFORMATION
  Report Type: 
  Country: None (occurrence: None)
  Receive Date: 20080220
  Receipt Date: 20080213
  Transmission Date: 20080703
  Serious: Yes (Death, Hospitalization)
  Sender: FDA-Public Use
  Company Number: JP-ROCHE-547167

PATIENT
  Age: 69 Year
  Sex: Male

DRUGS (5)
  1. CAPECITABINE [Suspect]
     Dosage: FREQUENCY REPORTED AS D1-14 EVERY 3 WEEKS
     Route: 048
     Dates: start: 20070828, end: 20071114
  2. TRASTUZUMAB [Suspect]
     Dosage: DOSAGE FROM REPORTED AS INFUSION
     Route: 042
     Dates: start: 20070828, end: 20071031
  3. CISPLATIN [Suspect]
     Route: 042
     Dates: start: 20070828, end: 20071031
  4. PACLITAXEL [Suspect]
     Indication: DRUG USE FOR UNKNOWN INDICATION
     Route: 065
     Dates: start: 20080108, end: 20080122
  5. IRINOTECAN [Suspect]
     Indication: DRUG USE FOR UNKNOWN INDICATION
     Route: 065
     Dates: start: 20071128, end: 20071214

REACTIONS (2)
  - ANGINA UNSTABLE [None]
  - CARDIAC FAILURE [None]
